FAERS Safety Report 8163015-6 (Version None)
Quarter: 2012Q1

REPORT INFORMATION
  Report Type: 
  Country: None (occurrence: None)
  Receive Date: 20120224
  Receipt Date: 20120216
  Transmission Date: 20120608
  Serious: Yes (Other)
  Sender: FDA-Public Use
  Company Number: US-BAYER-2011-069839

PATIENT
  Age: 42 Year
  Sex: Female

DRUGS (2)
  1. YAZ [Suspect]
     Indication: CONTRACEPTION
     Dosage: UNK
     Dates: start: 20080101, end: 20090801
  2. IUD NOS [Concomitant]

REACTIONS (3)
  - PAIN [None]
  - DEEP VEIN THROMBOSIS [None]
  - INJURY [None]
